FAERS Safety Report 17428694 (Version 4)
Quarter: 2023Q2

REPORT INFORMATION
  Report Type: Spontaneous
  Country: HU (occurrence: HU)
  Receive Date: 20200217
  Receipt Date: 20230525
  Transmission Date: 20230721
  Serious: Yes (Life-Threatening, Hospitalization, Other)
  Sender: FDA-Public Use
  Company Number: HU-SA-2019SA345602

PATIENT
  Age: 15 Year
  Sex: Female

DRUGS (7)
  1. LAMOTRIGINE [Suspect]
     Active Substance: LAMOTRIGINE
     Indication: Juvenile myoclonic epilepsy
     Dosage: 150 MILLIGRAM, QD
     Route: 048
     Dates: start: 201812, end: 2019
  2. LAMOTRIGINE [Suspect]
     Active Substance: LAMOTRIGINE
     Indication: Epilepsy
     Dosage: 75 MILLIGRAM, BID
     Route: 065
     Dates: start: 2019
  3. VALPROATE [Suspect]
     Active Substance: VALPROIC ACID
     Indication: Juvenile myoclonic epilepsy
     Dosage: 600 MILLIGRAM(600 MG TOTAL DOSE)
     Route: 065
  4. CLOBAZAM [Suspect]
     Active Substance: CLOBAZAM
     Indication: Juvenile myoclonic epilepsy
     Dosage: UNK
     Route: 065
     Dates: start: 2019
  5. TOPIRAMATE [Concomitant]
     Active Substance: TOPIRAMATE
     Indication: Juvenile myoclonic epilepsy
     Dosage: 150 MILLIGRAM, QD
     Route: 065
     Dates: start: 201809, end: 2018
  6. TOPIRAMATE [Concomitant]
     Active Substance: TOPIRAMATE
     Indication: Epilepsy
  7. CLONAZEPAM [Concomitant]
     Active Substance: CLONAZEPAM
     Indication: Juvenile myoclonic epilepsy
     Dosage: UNK
     Route: 065
     Dates: start: 2019

REACTIONS (23)
  - Agranulocytosis [Recovered/Resolved]
  - Hypoventilation [Recovered/Resolved]
  - Respiratory failure [Recovered/Resolved]
  - Hepatic enzyme increased [Recovering/Resolving]
  - Respiration abnormal [Recovered/Resolved]
  - Herpes simplex reactivation [Recovered/Resolved]
  - Pleurisy [Recovered/Resolved]
  - Nausea [Recovering/Resolving]
  - Anaemia [Recovering/Resolving]
  - Pyrexia [Recovering/Resolving]
  - Drug reaction with eosinophilia and systemic symptoms [Recovered/Resolved]
  - Rash [Recovering/Resolving]
  - Rash erythematous [Recovering/Resolving]
  - Rash maculo-papular [Recovering/Resolving]
  - Hepatosplenomegaly [Recovering/Resolving]
  - Learning disorder [Unknown]
  - Hyponatraemia [Recovered/Resolved]
  - Myoclonic epilepsy [Recovering/Resolving]
  - Condition aggravated [Unknown]
  - Cutaneous symptom [Unknown]
  - Headache [Unknown]
  - Vomiting [Unknown]
  - Drug ineffective [Unknown]

NARRATIVE: CASE EVENT DATE: 20190101
